FAERS Safety Report 16460388 (Version 1)
Quarter: 2019Q2

REPORT INFORMATION
  Report Type: Spontaneous
  Country: JP (occurrence: JP)
  Receive Date: 20190620
  Receipt Date: 20190620
  Transmission Date: 20190711
  Serious: Yes (Hospitalization, Other)
  Sender: FDA-Public Use
  Company Number: JP-ABBVIE-19P-087-2826855-00

PATIENT
  Sex: Female

DRUGS (2)
  1. LEUPLIN [Suspect]
     Active Substance: LEUPROLIDE ACETATE
     Indication: BREAST CANCER
     Dosage: UNK
     Route: 058
     Dates: start: 2019
  2. NOLVADEX [Concomitant]
     Active Substance: TAMOXIFEN CITRATE
     Indication: PRODUCT USED FOR UNKNOWN INDICATION
     Dosage: UNK
     Route: 065

REACTIONS (6)
  - Blood triglycerides increased [Recovered/Resolved]
  - Mesenteritis [Recovered/Resolved]
  - Gastrointestinal oedema [Recovered/Resolved]
  - Hyperlipidaemia [Unknown]
  - Pancreatitis acute [Unknown]
  - Hypercoagulation [Unknown]

NARRATIVE: CASE EVENT DATE: 201906
